FAERS Safety Report 18195145 (Version 1)
Quarter: 2020Q3

REPORT INFORMATION
  Report Type: Spontaneous
  Country: DE (occurrence: DE)
  Receive Date: 20200825
  Receipt Date: 20200825
  Transmission Date: 20201103
  Serious: Yes (Hospitalization)
  Sender: FDA-Public Use
  Company Number: DE-ELI_LILLY_AND_COMPANY-DE202008005134

PATIENT
  Age: 66 Year
  Sex: Male
  Weight: 140 kg

DRUGS (8)
  1. FINASTERIDE. [Interacting]
     Active Substance: FINASTERIDE
     Indication: PRODUCT USED FOR UNKNOWN INDICATION
     Dosage: 5 MG, UNKNOWN (0?0?1?0)
     Route: 048
  2. HYDROCHLOROTHIAZID [Interacting]
     Active Substance: HYDROCHLOROTHIAZIDE
     Indication: PRODUCT USED FOR UNKNOWN INDICATION
     Dosage: 12.5 MG, UNKNOWN (1?0?0?0)
     Route: 048
  3. MOXONIDIN [Interacting]
     Active Substance: MOXONIDINE
     Indication: PRODUCT USED FOR UNKNOWN INDICATION
     Dosage: 0.3 MG, UNKNOWN (1?0?0?0)
     Route: 048
  4. DULOXETINE HYDROCHLORIDE. [Suspect]
     Active Substance: DULOXETINE HYDROCHLORIDE
     Indication: PRODUCT USED FOR UNKNOWN INDICATION
     Dosage: 30 MG, UNKNOWN (1?0?1?0)
     Route: 048
  5. BISOPROLOL [Interacting]
     Active Substance: BISOPROLOL
     Indication: PRODUCT USED FOR UNKNOWN INDICATION
     Dosage: 5 MG, UNKNOWN (1?0?0?0)
     Route: 048
  6. TAMSULOSIN [Interacting]
     Active Substance: TAMSULOSIN
     Indication: PRODUCT USED FOR UNKNOWN INDICATION
     Dosage: 0.4 MG, UNKNOWN (^0?0?1?0)
     Route: 048
  7. VALSARTAN. [Interacting]
     Active Substance: VALSARTAN
     Indication: PRODUCT USED FOR UNKNOWN INDICATION
     Dosage: 160 MG, UNKNOWN (1?0?0?0)
     Route: 048
  8. AMLODIPINE [Interacting]
     Active Substance: AMLODIPINE BESYLATE
     Indication: PRODUCT USED FOR UNKNOWN INDICATION
     Dosage: 10 MG, UNKNOWN (1?0?0?0)
     Route: 048

REACTIONS (8)
  - Hypotension [Recovering/Resolving]
  - Labelled drug-drug interaction medication error [Unknown]
  - Dizziness [Recovering/Resolving]
  - Feeling hot [Recovering/Resolving]
  - General physical health deterioration [Recovering/Resolving]
  - Vertigo [Recovering/Resolving]
  - Renal impairment [Recovering/Resolving]
  - Gait disturbance [Recovering/Resolving]
